FAERS Safety Report 5690641-6 (Version None)
Quarter: 2008Q2

REPORT INFORMATION
  Report Type: 
  Country: None (occurrence: None)
  Receive Date: 20080401
  Receipt Date: 20080321
  Transmission Date: 20081010
  Serious: Yes (Hospitalization)
  Sender: FDA-Public Use
  Company Number: JP-JNJFOC-20080304288

PATIENT
  Sex: Male

DRUGS (8)
  1. DORIBAX [Suspect]
     Route: 041
  2. DORIBAX [Suspect]
     Indication: CHOLANGITIS ACUTE
     Route: 041
  3. MUCOSTA [Concomitant]
     Indication: GASTRIC ULCER
     Route: 048
  4. LANIRAPID [Concomitant]
     Indication: CARDIAC FAILURE CONGESTIVE
     Route: 048
  5. OMEPRAL [Concomitant]
     Indication: GASTRIC ULCER
     Route: 048
  6. DIART [Concomitant]
     Indication: CARDIAC FAILURE CONGESTIVE
     Route: 048
  7. CEROCRAL [Concomitant]
     Indication: CEREBRAL INFARCTION
     Route: 048
  8. URSO 250 [Concomitant]
     Indication: CHOLELITHIASIS
     Route: 048

REACTIONS (1)
  - GASTROENTERITIS STAPHYLOCOCCAL [None]
